FAERS Safety Report 24880731 (Version 2)
Quarter: 2025Q1

REPORT INFORMATION
  Report Type: Spontaneous
  Country: ES (occurrence: ES)
  Receive Date: 20250123
  Receipt Date: 20250317
  Transmission Date: 20250409
  Serious: Yes (Other)
  Sender: MERCK SHARP & DOHME LLC
  Company Number: ES-009507513-2501PRT004877

PATIENT

DRUGS (6)
  1. LETERMOVIR [Suspect]
     Active Substance: LETERMOVIR
     Indication: Antiviral prophylaxis
     Route: 048
  2. TACROLIMUS [Suspect]
     Active Substance: TACROLIMUS
     Indication: Prophylaxis against graft versus host disease
     Route: 042
  3. CYCLOPHOSPHAMIDE [Concomitant]
     Active Substance: CYCLOPHOSPHAMIDE
     Indication: Prophylaxis against graft versus host disease
     Route: 042
  4. LEVOFLOXACIN [Concomitant]
     Active Substance: LEVOFLOXACIN
     Indication: Infection prophylaxis
     Dosage: DOSE DESCRIPTION : 500 MG DAILY UNTIL NEUTROPHIL ENGRAFTMENT?DAILY DOSE : 500 MILLIGRAM
  5. FLUCONAZOLE [Concomitant]
     Active Substance: FLUCONAZOLE
     Indication: Infection prophylaxis
     Dosage: DOSE DESCRIPTION : 400 MG DAILY FOR 2 MONTHS?DAILY DOSE : 400 MILLIGRAM
  6. ACYCLOVIR [Concomitant]
     Active Substance: ACYCLOVIR
     Indication: Infection prophylaxis
     Dosage: DOSE DESCRIPTION : 800 MG TWICE DAILY FOR 12 MONTHS?DAILY DOSE : 1600 MILLIGRAM

REACTIONS (3)
  - Cytomegalovirus infection reactivation [Unknown]
  - Drug ineffective [Unknown]
  - Labelled drug-drug interaction issue [Unknown]
